FAERS Safety Report 14182711 (Version 1)
Quarter: 2017Q4

REPORT INFORMATION
  Report Type: Spontaneous
  Country: DZ (occurrence: DZ)
  Receive Date: 20171113
  Receipt Date: 20171113
  Transmission Date: 20180321
  Serious: Yes (Other)
  Sender: FDA-Public Use
  Company Number: DZ-AMGEN-DZASL2017169118

PATIENT
  Sex: Female
  Weight: 60 kg

DRUGS (1)
  1. MIMPARA [Suspect]
     Active Substance: CINACALCET HYDROCHLORIDE
     Indication: HYPERPARATHYROIDISM TERTIARY
     Dosage: 30 MG, BID
     Route: 065

REACTIONS (3)
  - Therapy non-responder [Unknown]
  - Chest pain [Recovering/Resolving]
  - Anaemia [Recovering/Resolving]
